FAERS Safety Report 20625735 (Version 1)
Quarter: 2022Q1

REPORT INFORMATION
  Report Type: Spontaneous
  Country: US (occurrence: None)
  Receive Date: 20220323
  Receipt Date: 20220323
  Transmission Date: 20220423
  Serious: No
  Sender: FDA-Public Use
  Company Number: US-ROCHE-2898470

PATIENT
  Sex: Female

DRUGS (7)
  1. ERIVEDGE [Suspect]
     Active Substance: VISMODEGIB
     Indication: Basal cell carcinoma
     Dosage: TAKE 3 CAPSULES BY MOUTH EVERY MONDAY, WEDNESDAY AND FRIDAY.
     Route: 048
     Dates: start: 20180312
  2. MEGESTROL [Concomitant]
     Active Substance: MEGESTROL
  3. POTASSIUM [Concomitant]
     Active Substance: POTASSIUM
  4. LOMOTIL [Concomitant]
     Active Substance: ATROPINE SULFATE\DIPHENOXYLATE HYDROCHLORIDE
     Dosage: 2.5-0.02 MG
  5. REMERON [Concomitant]
     Active Substance: MIRTAZAPINE
  6. MIRTAZAPINE [Concomitant]
     Active Substance: MIRTAZAPINE
  7. VITAMIN D3 [Concomitant]
     Active Substance: CHOLECALCIFEROL
     Dosage: 5000 UNIT

REACTIONS (2)
  - Muscle spasms [Recovered/Resolved]
  - Weight decreased [Recovered/Resolved]
